FAERS Safety Report 10043263 (Version 3)
Quarter: 2014Q4

REPORT INFORMATION
  Report Type: Report from Study
  Country: BE (occurrence: BE)
  Receive Date: 20140328
  Receipt Date: 20141001
  Transmission Date: 20150528
  Serious: Yes (Hospitalization)
  Sender: FDA-Public Use
  Company Number: BE-ROCHE-1300166

PATIENT
  Age: 73 Year
  Sex: Male
  Weight: 90 kg

DRUGS (6)
  1. CAPECITABINE. [Suspect]
     Active Substance: CAPECITABINE
     Indication: RECTAL CANCER
     Dosage: DATE OF MOST RECENT DOSE PRIOR TO EVENT 30/OCT/2013
     Route: 048
     Dates: start: 20131014, end: 20131230
  2. OXALIPLATIN. [Suspect]
     Active Substance: OXALIPLATIN
     Indication: RECTAL CANCER
     Route: 065
  3. ZOLPIDEM [Concomitant]
     Active Substance: ZOLPIDEM\ZOLPIDEM TARTRATE
     Route: 065
     Dates: start: 20131016
  4. OMEPRAZOLE. [Concomitant]
     Active Substance: OMEPRAZOLE
  5. BEVACIZUMAB [Suspect]
     Active Substance: BEVACIZUMAB
     Indication: RECTAL CANCER
     Dosage: DATE OF MOST RECENT DOSE  28/OCT/2013
     Route: 042
     Dates: start: 20130930, end: 20131028
  6. DAFALGAN [Concomitant]
     Active Substance: ACETAMINOPHEN
     Route: 065
     Dates: start: 20131018

REACTIONS (3)
  - Malaise [Recovered/Resolved]
  - Vocal cord paresis [Recovered/Resolved]
  - Cranial nerve disorder [Recovered/Resolved]

NARRATIVE: CASE EVENT DATE: 20131101
